FAERS Safety Report 25036914 (Version 1)
Quarter: 2025Q1

REPORT INFORMATION
  Report Type: Spontaneous
  Country: US (occurrence: None)
  Receive Date: 20250304
  Receipt Date: 20250304
  Transmission Date: 20250408
  Serious: Yes (Hospitalization)
  Sender: FDA-CTU
  Company Number: None

PATIENT
  Age: 60 Year
  Sex: Female
  Weight: 128.7 kg

DRUGS (11)
  1. MOUNJARO [Suspect]
     Active Substance: TIRZEPATIDE
     Indication: Diabetes mellitus
     Route: 050
     Dates: start: 20250227, end: 20250227
  2. METOPROLOL [Concomitant]
     Active Substance: METOPROLOL
  3. MAXZIDE [Concomitant]
     Active Substance: HYDROCHLOROTHIAZIDE\TRIAMTERENE
  4. CRESTOR [Concomitant]
     Active Substance: ROSUVASTATIN CALCIUM
  5. levothrozine [Concomitant]
  6. FAMOTIDINE [Concomitant]
     Active Substance: FAMOTIDINE
  7. SYMBICORT [Concomitant]
     Active Substance: BUDESONIDE\FORMOTEROL FUMARATE DIHYDRATE
  8. AZELASTINE [Concomitant]
     Active Substance: AZELASTINE
  9. MAGNESIUM [Concomitant]
     Active Substance: MAGNESIUM
  10. TYLENOL [Concomitant]
     Active Substance: ACETAMINOPHEN
  11. IBUPROFEN [Concomitant]
     Active Substance: IBUPROFEN

REACTIONS (12)
  - Hypersensitivity [None]
  - Anaphylactic shock [None]
  - Feeling hot [None]
  - Malaise [None]
  - Erythema [None]
  - Pruritus [None]
  - Erythema [None]
  - Dry mouth [None]
  - Periorbital swelling [None]
  - Swollen tongue [None]
  - Peripheral sensory neuropathy [None]
  - Nausea [None]

NARRATIVE: CASE EVENT DATE: 20250227
